FAERS Safety Report 4577389-6 (Version None)
Quarter: 2005Q1

REPORT INFORMATION
  Report Type: 
  Country: None (occurrence: None)
  Receive Date: 20050210
  Receipt Date: 20050204
  Transmission Date: 20050727
  Serious: Yes (Hospitalization)
  Sender: FDA-Public Use
  Company Number: DE-GLAXOSMITHKLINE-D0045813A

PATIENT
  Age: 76 Year
  Sex: Female

DRUGS (6)
  1. SEROXAT [Suspect]
     Indication: DEPRESSION
     Route: 065
     Dates: start: 20010105, end: 20010202
  2. EUTHYROX [Concomitant]
     Dosage: 50MCG PER DAY
     Route: 065
     Dates: start: 20001129, end: 20010214
  3. PLAVIX [Concomitant]
     Dosage: 75MG PER DAY
     Route: 065
     Dates: start: 20001122, end: 20010419
  4. XIMOVAN [Concomitant]
     Dosage: 7.5MG PER DAY
     Route: 065
     Dates: start: 20001122, end: 20010419
  5. DIPIPERON [Concomitant]
     Route: 065
     Dates: start: 20001128, end: 20010206
  6. ALUMINUM HYDROXIDE AND MAGNESIUM TRISILICATE [Concomitant]
     Dosage: 1200MG PER DAY
     Route: 065
     Dates: start: 20010131, end: 20010208

REACTIONS (3)
  - CONSTIPATION [None]
  - DRUG LEVEL INCREASED [None]
  - FAECALOMA [None]
